FAERS Safety Report 10837408 (Version 1)
Quarter: 2015Q1

REPORT INFORMATION
  Report Type: Spontaneous
  Country: US (occurrence: US)
  Receive Date: 20150219
  Receipt Date: 20150219
  Transmission Date: 20150721
  Serious: No
  Sender: FDA-Public Use
  Company Number: US-ABBVIE-14P-163-1216052-00

PATIENT
  Age: 66 Year
  Sex: Male
  Weight: 120.31 kg

DRUGS (2)
  1. HUMIRA [Suspect]
     Active Substance: ADALIMUMAB
     Indication: PSORIASIS
     Dates: start: 201209
  2. BETAMETHASONE [Concomitant]
     Active Substance: BETAMETHASONE
     Indication: PSORIASIS

REACTIONS (2)
  - Paranasal sinus discomfort [Not Recovered/Not Resolved]
  - Oropharyngeal pain [Not Recovered/Not Resolved]

NARRATIVE: CASE EVENT DATE: 20140322
